FAERS Safety Report 15875899 (Version 4)
Quarter: 2020Q2

REPORT INFORMATION
  Report Type: Report from Study
  Country: GB (occurrence: GB)
  Receive Date: 20190126
  Receipt Date: 20200402
  Transmission Date: 20200713
  Serious: Yes (Other)
  Sender: FDA-Public Use
  Company Number: PHHY2018GB007700

PATIENT
  Age: 45 Year
  Sex: Female

DRUGS (3)
  1. MORPHINE [Concomitant]
     Active Substance: MORPHINE
     Indication: PRODUCT USED FOR UNKNOWN INDICATION
     Dosage: 15 MG, UNK
     Route: 065
  2. COSENTYX [Suspect]
     Active Substance: SECUKINUMAB
     Indication: PSORIASIS
     Dosage: 300 MG, QMO
     Route: 058
     Dates: start: 2014
  3. COSENTYX [Suspect]
     Active Substance: SECUKINUMAB
     Dosage: 300 MG, QMO
     Route: 058
     Dates: start: 20171009

REACTIONS (15)
  - Laryngitis [Unknown]
  - Viral infection [Unknown]
  - Psoriasis [Unknown]
  - Malaise [Unknown]
  - Feeling abnormal [Not Recovered/Not Resolved]
  - Head discomfort [Unknown]
  - Tonsillitis [Recovered/Resolved]
  - Kidney infection [Unknown]
  - Lymphadenopathy [Not Recovered/Not Resolved]
  - Tonsillitis [Unknown]
  - Musculoskeletal discomfort [Unknown]
  - Oropharyngeal pain [Not Recovered/Not Resolved]
  - Lower respiratory tract infection [Recovering/Resolving]
  - Sinus disorder [Unknown]
  - Influenza [Unknown]

NARRATIVE: CASE EVENT DATE: 20171229
